FAERS Safety Report 4541090-5 (Version None)
Quarter: 2004Q4

REPORT INFORMATION
  Report Type: 
  Country: None (occurrence: None)
  Receive Date: 20041228
  Receipt Date: 20041220
  Transmission Date: 20050328
  Serious: Yes (Life-Threatening, Hospitalization)
  Sender: FDA-Public Use
  Company Number: F01200403946

PATIENT
  Age: 69 Year
  Sex: Male

DRUGS (13)
  1. (OXALIPLATIN) - SOLUTION - 150 MG [Suspect]
     Indication: COLORECTAL CANCER METASTATIC
     Dosage: 150 MG Q2W, INTRAVENOUS NOS
     Route: 042
     Dates: start: 20041129, end: 20041129
  2. FLUOROURACIL [Suspect]
     Dosage: 700 MG IV BOLUS AND 1025 MG IV CONTINUOUS INFUSION, Q2W INTRAVENOUS NOS
     Route: 042
     Dates: start: 20041129, end: 20041130
  3. LEUCOVORIN - SOLUTION - 350 MG [Suspect]
     Dosage: 350 MG Q2W INTRAVENOUS NOS
     Route: 042
     Dates: start: 20041129, end: 20041130
  4. BEVACIZUMAB OR PLACEBO - SOLUTION - 1 UNIT [Suspect]
     Dosage: 1 UNIT Q2W INTRAVENOUS NOS
     Route: 042
     Dates: start: 20041129, end: 20041129
  5. NEURONTIN [Concomitant]
  6. NU-SEALS ASPIRIN (ACETYLSALICYLIC ACID) [Concomitant]
  7. RAMIPRIL [Concomitant]
  8. LIPOSTAT (PRAVASTATIN SODIUM) [Concomitant]
  9. ZIRTEK (CETIRIZINE HYDROCHLORIDE) [Concomitant]
  10. LANSOPRAZOLE [Concomitant]
  11. MAXOLON [Concomitant]
  12. OXYCONTIN [Concomitant]
  13. . [Concomitant]

REACTIONS (7)
  - ABDOMINAL DISCOMFORT [None]
  - CONFUSIONAL STATE [None]
  - DECREASED APPETITE [None]
  - DYSPNOEA [None]
  - NEUTROPENIC SEPSIS [None]
  - PYREXIA [None]
  - VENTRICULAR TACHYCARDIA [None]
